FAERS Safety Report 24990630 (Version 1)
Quarter: 2025Q1

REPORT INFORMATION
  Report Type: Spontaneous
  Country: US (occurrence: None)
  Receive Date: 20250220
  Receipt Date: 20250220
  Transmission Date: 20250409
  Serious: Yes (Hospitalization)
  Sender: FDA-CTU
  Company Number: None

PATIENT
  Sex: Female

DRUGS (3)
  1. AMBRISENTAN [Suspect]
     Active Substance: AMBRISENTAN
     Indication: Pulmonary arterial hypertension
     Dosage: FREQUENCY : DAILY;?
     Route: 048
     Dates: start: 202310
  2. WINREVAIR [Concomitant]
     Active Substance: SOTATERCEPT-CSRK
  3. REMODULN MDV [Concomitant]

REACTIONS (4)
  - Nausea [None]
  - Decreased appetite [None]
  - Respiratory syncytial virus infection [None]
  - Oxygen saturation decreased [None]
